FAERS Safety Report 5776995-0 (Version None)
Quarter: 2008Q2

REPORT INFORMATION
  Report Type: 
  Country: None (occurrence: None)
  Receive Date: 20080601
  Receipt Date: 20080118
  Transmission Date: 20081010
  Serious: No
  Sender: FDA-Public Use
  Company Number: US200801004181

PATIENT
  Age: 52 Year
  Sex: Female

DRUGS (7)
  1. BYETTA [Suspect]
     Indication: TYPE 2 DIABETES MELLITUS
     Dosage: 5 UG, 2/D, SUBCUTANEOUS; 10 UG, 2/D, SUBCUTANEOUS
     Route: 058
     Dates: start: 20070101, end: 20070101
  2. BYETTA [Suspect]
     Indication: TYPE 2 DIABETES MELLITUS
     Dosage: 5 UG, 2/D, SUBCUTANEOUS; 10 UG, 2/D, SUBCUTANEOUS
     Route: 058
     Dates: start: 20070101, end: 20080114
  3. EXENATIDE 5MCG PEN,DISPOSABLE DEVICE (EXENATIDE PEN (5 MCG)) PEN,DISPO [Concomitant]
  4. EXENATIDE 10MCG PEN,DISPOSABLE DEVICE (EXENATIDE PEN (10MCG)) PEN,DISP [Concomitant]
  5. METFORMIN HCL [Concomitant]
  6. NEXIUM [Concomitant]
  7. PRILOSEC [Concomitant]

REACTIONS (5)
  - FOOD INTOLERANCE [None]
  - GASTROENTERITIS VIRAL [None]
  - GASTROOESOPHAGEAL REFLUX DISEASE [None]
  - NAUSEA [None]
  - STOMACH DISCOMFORT [None]
